FAERS Safety Report 8903278 (Version 2)
Quarter: 2012Q4

REPORT INFORMATION
  Report Type: 
  Country: US (occurrence: US)
  Receive Date: 20121112
  Receipt Date: 20121123
  Transmission Date: 20130627
  Serious: No
  Sender: FDA-Public Use
  Company Number: US-009507513-1211USA003119

PATIENT
  Age: 72 Year
  Sex: Male
  Weight: 50.79 kg

DRUGS (2)
  1. CLARITIN REDITABS 12HR [Suspect]
     Indication: THROAT IRRITATION
     Dosage: 5 mg, q12h
     Route: 048
     Dates: start: 20120905, end: 20120907
  2. CLARITIN REDITABS 12HR [Suspect]
     Indication: MEDICAL OBSERVATION

REACTIONS (2)
  - Drug ineffective [Unknown]
  - Drug ineffective for unapproved indication [Unknown]
